FAERS Safety Report 16880209 (Version 5)
Quarter: 2020Q1

REPORT INFORMATION
  Report Type: Report from Study
  Country: None (occurrence: US)
  Receive Date: 20191003
  Receipt Date: 20200128
  Transmission Date: 20200409
  Serious: Yes (Other)
  Sender: FDA-Public Use
  Company Number: US-ABBVIE-19K-163-2785566-00

PATIENT
  Age: 69 Year
  Sex: Male

DRUGS (2)
  1. HUMIRA [Suspect]
     Active Substance: ADALIMUMAB
     Indication: PSORIATIC ARTHROPATHY
     Route: 058
     Dates: start: 2016
  2. HUMIRA [Suspect]
     Active Substance: ADALIMUMAB
     Route: 058
     Dates: start: 2016

REACTIONS (11)
  - Lung neoplasm malignant [Recovered/Resolved]
  - Post procedural complication [Unknown]
  - Coronary artery bypass [Recovered/Resolved]
  - Asthenia [Unknown]
  - Stent placement [Recovered/Resolved]
  - Muscular weakness [Recovering/Resolving]
  - Musculoskeletal discomfort [Recovering/Resolving]
  - Chest pain [Recovering/Resolving]
  - Cardiac operation [Recovering/Resolving]
  - Cough [Not Recovered/Not Resolved]
  - Nephrolithiasis [Not Recovered/Not Resolved]

NARRATIVE: CASE EVENT DATE: 2018
